FAERS Safety Report 21633107 (Version 1)
Quarter: 2022Q4

REPORT INFORMATION
  Report Type: Spontaneous
  Country: US (occurrence: None)
  Receive Date: 20221122
  Receipt Date: 20221122
  Transmission Date: 20230112
  Serious: Yes (Hospitalization, Disabling)
  Sender: FDA-Public Use
  Company Number: None

PATIENT
  Age: 41 Year
  Sex: Female

DRUGS (28)
  1. HUMIRA [Suspect]
     Active Substance: ADALIMUMAB
     Indication: Hidradenitis
     Dosage: FREQUENCY : 3 TIMES A WEEK;?
     Route: 058
     Dates: start: 20220922, end: 20221115
  2. BENZOLY PEROXIDE [Concomitant]
  3. BUPROPION [Concomitant]
     Active Substance: BUPROPION
  4. BUSPIRONE [Concomitant]
     Active Substance: BUSPIRONE HYDROCHLORIDE
  5. CLINDAMYCIN PHOSPHATE [Concomitant]
     Active Substance: CLINDAMYCIN PHOSPHATE
  6. CLINDAMYCIN [Concomitant]
     Active Substance: CLINDAMYCIN
  7. CLOTRIMAZOLE-BETAMETHASONE CRM [Concomitant]
  8. DOXYCYCLINE [Concomitant]
     Active Substance: DOXYCYCLINE
  9. ESZOPICLONE [Concomitant]
     Active Substance: ESZOPICLONE
  10. FLUCONAZOLE [Concomitant]
     Active Substance: FLUCONAZOLE
  11. ACETAMINOPHEN\HYDROCODONE [Concomitant]
     Active Substance: ACETAMINOPHEN\HYDROCODONE
  12. IBUPROFEN [Concomitant]
     Active Substance: IBUPROFEN
  13. METFORMIN [Concomitant]
     Active Substance: METFORMIN HYDROCHLORIDE
  14. NITROFURANTON MONO/MAC [Concomitant]
  15. PREGABALIN [Concomitant]
     Active Substance: PREGABALIN
  16. RETINA 0.1% CREAM [Concomitant]
  17. ZIPRASIDONE HYDROCHLORIDE [Concomitant]
     Active Substance: ZIPRASIDONE HYDROCHLORIDE
  18. ACETAMINOPHEN [Concomitant]
     Active Substance: ACETAMINOPHEN
  19. CETIRIZINE [Suspect]
     Active Substance: CETIRIZINE HYDROCHLORIDE
  20. DICYCLOMINE [Concomitant]
     Active Substance: DICYCLOMINE HYDROCHLORIDE
  21. ESZOPICLONE [Concomitant]
     Active Substance: ESZOPICLONE
  22. HYDROCHLOROTHIAZIDE [Concomitant]
     Active Substance: HYDROCHLOROTHIAZIDE
  23. LACTULOSE [Concomitant]
     Active Substance: LACTULOSE
  24. LEVOTHYROXINE [Concomitant]
     Active Substance: LEVOTHYROXINE
  25. MULTI50+ FOR HER [Concomitant]
  26. NAPROXEN [Concomitant]
     Active Substance: NAPROXEN
  27. RIFAMPIN [Suspect]
     Active Substance: RIFAMPIN
  28. TOPIRAMATE [Concomitant]
     Active Substance: TOPIRAMATE

REACTIONS (4)
  - Muscle spasms [None]
  - Dysgeusia [None]
  - Fatigue [None]
  - Mobility decreased [None]

NARRATIVE: CASE EVENT DATE: 20221113
